FAERS Safety Report 13775449 (Version 1)
Quarter: 2017Q3

REPORT INFORMATION
  Report Type: Spontaneous
  Country: US (occurrence: US)
  Receive Date: 20170720
  Receipt Date: 20170720
  Transmission Date: 20171127
  Serious: No
  Sender: FDA-Public Use
  Company Number: None

PATIENT
  Age: 31 Year
  Sex: Female

DRUGS (1)
  1. AMPYRA [Suspect]
     Active Substance: DALFAMPRIDINE
     Indication: MULTIPLE SCLEROSIS
     Route: 048

REACTIONS (5)
  - Copper deficiency [None]
  - Off label use [None]
  - Myelitis [None]
  - Myelopathy [None]
  - Spinal cord compression [None]

NARRATIVE: CASE EVENT DATE: 20170719
